FAERS Safety Report 18784677 (Version 4)
Quarter: 2021Q2

REPORT INFORMATION
  Report Type: Spontaneous
  Country: US (occurrence: US)
  Receive Date: 20210125
  Receipt Date: 20210416
  Transmission Date: 20210717
  Serious: Yes (Hospitalization, Other)
  Sender: FDA-Public Use
  Company Number: US-VERTEX PHARMACEUTICALS-2021-000150

PATIENT
  Age: 5 Year
  Sex: Male

DRUGS (1)
  1. ORKAMBI [Suspect]
     Active Substance: IVACAFTOR\LUMACAFTOR
     Indication: CYSTIC FIBROSIS
     Dosage: 1 DOSAGE FORM, BID (ONE PACKET EVERY 12 HOURS)
     Route: 048
     Dates: start: 20181229

REACTIONS (6)
  - Mucosal dryness [Unknown]
  - Hospitalisation [Unknown]
  - Portal hypertension [Unknown]
  - COVID-19 [Unknown]
  - Rhinorrhoea [Unknown]
  - Somnolence [Unknown]

NARRATIVE: CASE EVENT DATE: 202012
